FAERS Safety Report 16934424 (Version 1)
Quarter: 2019Q4

REPORT INFORMATION
  Report Type: Spontaneous
  Country: RO (occurrence: RO)
  Receive Date: 20191018
  Receipt Date: 20191018
  Transmission Date: 20200122
  Serious: Yes (Death)
  Sender: FDA-Public Use
  Company Number: NVSC2019RO007046

PATIENT
  Age: 64 Year
  Sex: Female

DRUGS (1)
  1. AMOXICILLIN. [Suspect]
     Active Substance: AMOXICILLIN
     Indication: RESPIRATORY TRACT INFECTION
     Dosage: UNK
     Route: 065

REACTIONS (5)
  - Genital lesion [Fatal]
  - Product use in unapproved indication [Unknown]
  - Skin lesion [Fatal]
  - Oral disorder [Fatal]
  - Toxic epidermal necrolysis [Fatal]
